FAERS Safety Report 6313118-3 (Version None)
Quarter: 2009Q3

REPORT INFORMATION
  Report Type: 
  Country: None (occurrence: None)
  Receive Date: 20090818
  Receipt Date: 20090807
  Transmission Date: 20100115
  Serious: Yes (Hospitalization)
  Sender: FDA-Public Use
  Company Number: FR-PFIZER INC-2009251782

PATIENT
  Age: 55 Year

DRUGS (6)
  1. SUTENT [Suspect]
     Indication: GASTROINTESTINAL STROMAL TUMOUR
     Dosage: 37.5 MG, UNK
     Route: 048
     Dates: start: 20090331, end: 20090404
  2. DIAMICRON [Concomitant]
  3. AMLOR [Concomitant]
  4. KERLONE [Concomitant]
  5. ALDACTAZINE [Concomitant]
  6. COVERSYL [Concomitant]

REACTIONS (2)
  - RETINAL VEIN OCCLUSION [None]
  - VISUAL ACUITY REDUCED [None]
